FAERS Safety Report 19086254 (Version 1)
Quarter: 2021Q2

REPORT INFORMATION
  Report Type: Spontaneous
  Country: US (occurrence: US)
  Receive Date: 20210401
  Receipt Date: 20210401
  Transmission Date: 20210717
  Serious: Yes (Hospitalization)
  Sender: FDA-Public Use
  Company Number: None

PATIENT
  Age: 67 Year
  Sex: Female
  Weight: 50.8 kg

DRUGS (6)
  1. TAXOL [Suspect]
     Active Substance: PACLITAXEL
     Dates: end: 20210127
  2. LEVOTHYROXINE. [Concomitant]
     Active Substance: LEVOTHYROXINE
  3. RALOXIFENE. [Concomitant]
     Active Substance: RALOXIFENE
  4. PROCHOPERZAINE [Concomitant]
  5. HERCEPTIN [Suspect]
     Active Substance: TRASTUZUMAB
     Dates: end: 20210127
  6. PERTUZUMAB. [Suspect]
     Active Substance: PERTUZUMAB
     Dates: end: 20210120

REACTIONS (2)
  - COVID-19 [None]
  - Pulmonary embolism [None]

NARRATIVE: CASE EVENT DATE: 20210131
